FAERS Safety Report 20205080 (Version 3)
Quarter: 2022Q1

REPORT INFORMATION
  Report Type: Spontaneous
  Country: FR (occurrence: FR)
  Receive Date: 20211220
  Receipt Date: 20220127
  Transmission Date: 20220423
  Serious: Yes (Other)
  Sender: FDA-Public Use
  Company Number: FR-GW PHARMA-202112FRGW06183

PATIENT

DRUGS (8)
  1. CANNABIDIOL [Suspect]
     Active Substance: CANNABIDIOL
     Indication: Epilepsy
     Dosage: 5 MG/KG/DAY, 350 MILLIGRAM, QD
     Route: 048
     Dates: start: 20200123, end: 20200226
  2. CANNABIDIOL [Suspect]
     Active Substance: CANNABIDIOL
     Indication: Angiopathy
     Dosage: 5.71 MG/KG/DAY, 400 MILLIGRAM, QD
     Route: 048
     Dates: start: 20200227, end: 20200313
  3. CANNABIDIOL [Suspect]
     Active Substance: CANNABIDIOL
     Dosage: 7.14 MG/KG/DAY, 500 MILLIGRAM, QD
     Route: 048
     Dates: start: 20200314, end: 20200415
  4. CANNABIDIOL [Suspect]
     Active Substance: CANNABIDIOL
     Dosage: 10 MG/KG/DAY, 700 MILLIGRAM, QD
     Route: 048
     Dates: start: 20200416, end: 20200514
  5. CANNABIDIOL [Suspect]
     Active Substance: CANNABIDIOL
     Dosage: 15 MG/KG/DAY, 1000 MILLIGRAM, QD
     Route: 048
     Dates: start: 20200515, end: 20200623
  6. CANNABIDIOL [Suspect]
     Active Substance: CANNABIDIOL
     Dosage: 18.57 MG/KG/DAY, 1300 MILLIGRAM, QD
     Route: 048
     Dates: start: 20200624, end: 202006
  7. CANNABIDIOL [Suspect]
     Active Substance: CANNABIDIOL
     Dosage: 15 MG/KG/DAY, 1000 MILLIGRAM, QD
     Route: 048
     Dates: start: 202006, end: 2021
  8. CANNABIDIOL [Suspect]
     Active Substance: CANNABIDIOL
     Dosage: 10 MG/KG/DAY, 700 MILLIGRAM, QD
     Route: 048
     Dates: start: 2021, end: 20210726

REACTIONS (16)
  - Delirium [Recovered/Resolved]
  - Delirium [Recovered/Resolved]
  - Hallucination, auditory [Recovered/Resolved]
  - Hallucination, auditory [Recovered/Resolved]
  - Psychotic disorder [Recovered/Resolved]
  - Depression [Recovered/Resolved]
  - Depression [Recovered/Resolved]
  - Anxiety disorder [Recovered/Resolved]
  - Anxiety disorder [Recovered/Resolved]
  - Insomnia [Recovered/Resolved]
  - Insomnia [Recovered/Resolved]
  - Insomnia [Recovered/Resolved]
  - Agitation [Recovered/Resolved]
  - Agitation [Recovered/Resolved]
  - Drug effective for unapproved indication [Unknown]
  - Product use in unapproved indication [Unknown]

NARRATIVE: CASE EVENT DATE: 20200626
